FAERS Safety Report 6173164-X (Version None)
Quarter: 2009Q2

REPORT INFORMATION
  Report Type: 
  Country: None (occurrence: None)
  Receive Date: 20090424
  Receipt Date: 20081217
  Transmission Date: 20091009
  Serious: No
  Sender: FDA-Public Use
  Company Number: ALL1-2008-03577

PATIENT
  Age: 17 Year
  Sex: Female
  Weight: 86.2 kg

DRUGS (4)
  1. VYVANSE [Suspect]
     Indication: WEIGHT LOSS DIET
     Dosage: 20 MG, 1X/DAY:QD, ORAL
     Route: 048
     Dates: start: 20081201
  2. YAZ [Concomitant]
  3. KLONOPIN [Concomitant]
  4. CLONIDINE [Concomitant]

REACTIONS (6)
  - CHEST DISCOMFORT [None]
  - FEELING ABNORMAL [None]
  - HYPOAESTHESIA [None]
  - IRRITABILITY [None]
  - OFF LABEL USE [None]
  - VISION BLURRED [None]
